FAERS Safety Report 13707458 (Version 1)
Quarter: 2017Q2

REPORT INFORMATION
  Report Type: Spontaneous
  Country: US (occurrence: US)
  Receive Date: 20170630
  Receipt Date: 20170630
  Transmission Date: 20170830
  Serious: Yes (Life-Threatening, Hospitalization)
  Sender: FDA-Public Use
  Company Number: US-TEVA-780961USA

PATIENT
  Age: 15 Year
  Sex: Female

DRUGS (1)
  1. CARBAMAZEPINE. [Suspect]
     Active Substance: CARBAMAZEPINE
     Indication: INTENTIONAL OVERDOSE
     Dosage: 200MG; APPROXIMATELY 280 EXTENDED-RELEASE TABLET
     Route: 048

REACTIONS (11)
  - Generalised tonic-clonic seizure [Recovered/Resolved]
  - Hypotension [Recovered/Resolved]
  - Intentional overdose [Recovered/Resolved]
  - Respiratory failure [Recovered/Resolved]
  - Coma [Recovered/Resolved]
  - Shock [Recovered/Resolved]
  - Lactic acidosis [Recovered/Resolved]
  - Ileus [Recovered/Resolved]
  - Mydriasis [Recovered/Resolved]
  - Electrocardiogram QT prolonged [Recovered/Resolved]
  - Tachycardia [Recovered/Resolved]
